FAERS Safety Report 6184609-3 (Version None)
Quarter: 2009Q2

REPORT INFORMATION
  Report Type: 
  Country: None (occurrence: None)
  Receive Date: 20090508
  Receipt Date: 20090508
  Transmission Date: 20091009
  Serious: Yes (Hospitalization, Other)
  Sender: FDA-Public Use
  Company Number: PHHO2006CA10179

PATIENT
  Sex: Female
  Weight: 47 kg

DRUGS (1)
  1. SANDOSTATIN LAR [Suspect]
     Indication: PRADER-WILLI SYNDROME
     Dosage: 30 MG, UNK
     Route: 030
     Dates: start: 20060501, end: 20060607

REACTIONS (3)
  - ACUTE PSYCHOSIS [None]
  - CONCOMITANT DISEASE PROGRESSION [None]
  - OBSESSIVE-COMPULSIVE DISORDER [None]
